FAERS Safety Report 7115406-X (Version None)
Quarter: 2010Q4

REPORT INFORMATION
  Report Type: 
  Country: None (occurrence: None)
  Receive Date: 20101122
  Receipt Date: 20101102
  Transmission Date: 20110411
  Serious: Yes (Other)
  Sender: FDA-Public Use
  Company Number: PHHY2010JP74616

PATIENT
  Age: 2 Year
  Sex: Female

DRUGS (1)
  1. ZADITEN [Suspect]
     Indication: DERMATITIS ATOPIC
     Route: 048

REACTIONS (2)
  - PNEUMONIA [None]
  - SPUTUM RETENTION [None]
